FAERS Safety Report 7131338-5 (Version None)
Quarter: 2010Q4

REPORT INFORMATION
  Report Type: 
  Country: None (occurrence: None)
  Receive Date: 20101124
  Receipt Date: 20101124
  Transmission Date: 20110411
  Serious: Yes (Hospitalization)
  Sender: FDA-Public Use
  Company Number: None

PATIENT
  Sex: Female
  Weight: 46.5 kg

DRUGS (6)
  1. CYCLOPHOSPHAMIDE [Suspect]
     Dosage: 1200 MG
  2. DOXORUBICIN HYDROCHLORIDE [Suspect]
     Dosage: 64 MG
  3. ETOPOSIDE [Suspect]
     Dosage: 320 MG
  4. PREDNISONE [Suspect]
     Dosage: 960 MG
  5. RITUXIMAB (MOAB C2B8 ANTI CD 20, CHIMERIC) [Suspect]
     Dosage: 600 MG
  6. VINCRISTINE SULFATE [Suspect]
     Dosage: 2.56 MG

REACTIONS (8)
  - ABDOMINAL PAIN [None]
  - DIARRHOEA [None]
  - HYPOTENSION [None]
  - LETHARGY [None]
  - MULTI-ORGAN DISORDER [None]
  - NAUSEA [None]
  - RESPIRATORY DISTRESS [None]
  - VOMITING [None]
